FAERS Safety Report 18173761 (Version 1)
Quarter: 2020Q3

REPORT INFORMATION
  Report Type: Spontaneous
  Country: CA (occurrence: CA)
  Receive Date: 20200820
  Receipt Date: 20200820
  Transmission Date: 20201104
  Serious: Yes (Other)
  Sender: FDA-Public Use
  Company Number: CA-TEVA-2020-CA-1815106

PATIENT
  Age: 38 Year
  Sex: Male

DRUGS (7)
  1. PREDNISOLONE ACETATE. [Suspect]
     Active Substance: PREDNISOLONE ACETATE
     Indication: IRIDOCYCLITIS
     Dosage: 24 GTT DAILY;
     Route: 047
  2. MYCOPHENOLATE MOFETIL. [Suspect]
     Active Substance: MYCOPHENOLATE MOFETIL
     Indication: IMMUNOSUPPRESSANT DRUG THERAPY
     Route: 065
  3. PREDNISONE. [Suspect]
     Active Substance: PREDNISONE
     Indication: IMMUNOSUPPRESSANT DRUG THERAPY
  4. MAXIDEX [Suspect]
     Active Substance: DEXAMETHASONE
     Indication: IRIDOCYCLITIS
     Dosage: 2 GTT DAILY;
     Route: 047
  5. PREDNISONE. [Suspect]
     Active Substance: PREDNISONE
     Indication: UVEITIS
     Route: 048
  6. HOMATROPINE HYDROBROMIDE. [Suspect]
     Active Substance: HOMATROPINE HYDROBROMIDE
     Indication: IRIDOCYCLITIS
     Route: 047
  7. TACROLIMUS. [Suspect]
     Active Substance: TACROLIMUS
     Indication: IMMUNOSUPPRESSANT DRUG THERAPY
     Route: 065

REACTIONS (1)
  - Endophthalmitis [Unknown]
